FAERS Safety Report 5147016-8 (Version None)
Quarter: 2006Q4

REPORT INFORMATION
  Report Type: 
  Country: None (occurrence: None)
  Receive Date: 20061109
  Receipt Date: 20061030
  Transmission Date: 20070319
  Serious: Yes (Hospitalization, Disabling, Other)
  Sender: FDA-Public Use
  Company Number: GB-ELI_LILLY_AND_COMPANY-GB200610005272

PATIENT
  Sex: Female
  Weight: 44 kg

DRUGS (9)
  1. PROZAC [Suspect]
     Dosage: 60 MG, DAILY (1/D)
     Route: 048
  2. TRIFLUOPERAZINE HCL [Concomitant]
     Dosage: 10 MG, DAILY (1/D)
     Route: 048
  3. CEFOTAXIME [Concomitant]
     Dosage: 750 MG, 2/D
     Route: 042
     Dates: start: 20060926, end: 20060927
  4. CIPROFLOXACIN [Concomitant]
     Dosage: 250 MG, 2/D
     Route: 048
     Dates: start: 20060927, end: 20061010
  5. DIAZEPAM [Concomitant]
     Dosage: 5 MG, AS NEEDED
     Route: 048
     Dates: start: 20060927
  6. FOLIC ACID [Concomitant]
     Dosage: 5 MG, DAILY (1/D)
     Route: 048
     Dates: start: 20060927
  7. PABRINEX [Concomitant]
     Route: 042
     Dates: start: 20060926, end: 20060927
  8. THIAMINE [Concomitant]
     Dosage: 100 MG, 3/D
     Route: 048
     Dates: start: 20060927
  9. VITAMIN B COMPLEX CAP [Concomitant]
     Dosage: 2 D/F, 3/D
     Route: 048
     Dates: start: 20060927

REACTIONS (1)
  - NEPHRITIS INTERSTITIAL [None]
